FAERS Safety Report 15811444 (Version 1)
Quarter: 2019Q1

REPORT INFORMATION
  Report Type: Spontaneous
  Country: US (occurrence: US)
  Receive Date: 20190111
  Receipt Date: 20190111
  Transmission Date: 20190417
  Serious: Yes (Other)
  Sender: FDA-Public Use
  Company Number: US-ROCHE-2241798

PATIENT
  Sex: Male

DRUGS (9)
  1. KLONOPIN [Suspect]
     Active Substance: CLONAZEPAM
     Indication: PANIC DISORDER
     Route: 065
  2. CLONAZEPAM. [Concomitant]
     Active Substance: CLONAZEPAM
     Indication: ANXIETY
  3. KLONOPIN [Suspect]
     Active Substance: CLONAZEPAM
     Indication: ANXIETY
  4. KLONOPIN [Suspect]
     Active Substance: CLONAZEPAM
     Indication: POST-TRAUMATIC STRESS DISORDER
  5. CLONAZEPAM. [Concomitant]
     Active Substance: CLONAZEPAM
     Indication: POST-TRAUMATIC STRESS DISORDER
  6. CLONAZEPAM (TEVA PHARM) [Concomitant]
     Active Substance: CLONAZEPAM
     Indication: ANXIETY
  7. CLONAZEPAM (TEVA PHARM) [Concomitant]
     Active Substance: CLONAZEPAM
     Indication: POST-TRAUMATIC STRESS DISORDER
  8. CLONAZEPAM (TEVA PHARM) [Concomitant]
     Active Substance: CLONAZEPAM
     Indication: PANIC DISORDER
     Route: 048
     Dates: start: 20181226
  9. CLONAZEPAM. [Concomitant]
     Active Substance: CLONAZEPAM
     Indication: PANIC DISORDER
     Dosage: SOLCO
     Route: 065

REACTIONS (7)
  - Burn oral cavity [Unknown]
  - Heart rate increased [Unknown]
  - Trismus [Unknown]
  - Drug ineffective [Unknown]
  - Blood pressure increased [Unknown]
  - Vomiting [Unknown]
  - Throat irritation [Unknown]
